FAERS Safety Report 8096166-5 (Version None)
Quarter: 2012Q1

REPORT INFORMATION
  Report Type: 
  Country: None (occurrence: None)
  Receive Date: 20120131
  Receipt Date: 20120125
  Transmission Date: 20120608
  Serious: Yes (Other)
  Sender: FDA-Public Use
  Company Number: FR-GLAXOSMITHKLINE-B0778057A

PATIENT
  Sex: Female

DRUGS (4)
  1. NABUMETONE [Suspect]
     Indication: BACK PAIN
     Dosage: 1G PER DAY
     Route: 048
     Dates: start: 20100601, end: 20100701
  2. PANOS [Concomitant]
     Dates: start: 20110501, end: 20110501
  3. MIOREL [Concomitant]
     Dates: start: 20110101, end: 20110101
  4. PANOS [Concomitant]
     Dates: start: 20110101, end: 20110101

REACTIONS (1)
  - FIXED ERUPTION [None]
